FAERS Safety Report 22661748 (Version 1)
Quarter: 2023Q2

REPORT INFORMATION
  Report Type: Spontaneous
  Country: JP (occurrence: JP)
  Receive Date: 20230630
  Receipt Date: 20230630
  Transmission Date: 20230721
  Serious: Yes (Other)
  Sender: FDA-Public Use
  Company Number: JP-PFIZER INC-PV202300113872

PATIENT
  Age: 50 Year
  Sex: Male

DRUGS (1)
  1. VFEND [Suspect]
     Active Substance: VORICONAZOLE
     Dosage: UNK
     Dates: start: 201602, end: 202103

REACTIONS (3)
  - Photosensitivity reaction [Unknown]
  - Actinic keratosis [Unknown]
  - Squamous cell carcinoma [Unknown]
